FAERS Safety Report 21214239 (Version 2)
Quarter: 2022Q3

REPORT INFORMATION
  Report Type: Spontaneous
  Country: CA (occurrence: CA)
  Receive Date: 20220816
  Receipt Date: 20220822
  Transmission Date: 20221026
  Serious: Yes (Other)
  Sender: FDA-Public Use
  Company Number: CA-CELGENE-CAN-20210401878

PATIENT
  Age: 77 Year
  Sex: Male

DRUGS (10)
  1. REVLIMID [Suspect]
     Active Substance: LENALIDOMIDE
     Indication: Plasma cell myeloma
     Dosage: 15 MILLIGRAM
     Route: 048
  2. REVLIMID [Suspect]
     Active Substance: LENALIDOMIDE
     Route: 048
  3. DEXAMETHASONE [Suspect]
     Active Substance: DEXAMETHASONE
     Indication: Product used for unknown indication
     Dosage: FREQUENCY TEXT: NOT PROVIDED
     Route: 065
  4. LEVOFLOXACIN [Suspect]
     Active Substance: LEVOFLOXACIN
     Indication: Product used for unknown indication
     Dosage: FREQUENCY TEXT: NOT PROVIDED, LIQUID SOLUTION FOR INHALATION
     Route: 055
  5. VELCADE [Suspect]
     Active Substance: BORTEZOMIB
     Indication: Product used for unknown indication
     Dosage: FREQUENCY TEXT: NOT PROVIDED
     Route: 042
  6. VELCADE [Suspect]
     Active Substance: BORTEZOMIB
     Dosage: FORM: POWDER FOR SOLUTION FOR INJECTION OR INFUSION
     Route: 058
  7. PREGABALIN [Concomitant]
     Active Substance: PREGABALIN
     Indication: Paraesthesia
     Route: 065
  8. PREGABALIN [Concomitant]
     Active Substance: PREGABALIN
     Indication: Hypoaesthesia
     Dosage: FREQUENCY TEXT: 2 EVERY 1 DAYS
     Route: 065
  9. TYLENOL [Concomitant]
     Active Substance: ACETAMINOPHEN
     Indication: Product used for unknown indication
     Dosage: FREQUENCY TEXT: NOT PROVIDED
     Route: 065
  10. ZOMETA [Concomitant]
     Active Substance: ZOLEDRONIC ACID
     Indication: Product used for unknown indication
     Dosage: FREQUENCY TEXT: NOT PROVIDED
     Route: 042

REACTIONS (14)
  - Arthritis [Unknown]
  - Back pain [Unknown]
  - Fall [Unknown]
  - Gait inability [Unknown]
  - Haemarthrosis [Unknown]
  - Hypoaesthesia [Unknown]
  - Joint swelling [Unknown]
  - Muscle atrophy [Unknown]
  - Muscle spasms [Unknown]
  - Paraesthesia [Unknown]
  - Peripheral swelling [Unknown]
  - Protein total decreased [Unknown]
  - Vasodilatation [Unknown]
  - Weight decreased [Unknown]
